FAERS Safety Report 8184972-8 (Version None)
Quarter: 2012Q1

REPORT INFORMATION
  Report Type: 
  Country: None (occurrence: None)
  Receive Date: 20120305
  Receipt Date: 20120229
  Transmission Date: 20120608
  Serious: Yes (Other)
  Sender: FDA-Public Use
  Company Number: JP-GLAXOSMITHKLINE-B0785248A

PATIENT
  Sex: Male

DRUGS (5)
  1. PARKISTON [Concomitant]
     Indication: PARKINSON'S DISEASE
     Route: 048
  2. SELEGILINE HCL [Concomitant]
     Indication: PARKINSON'S DISEASE
     Route: 048
  3. REQUIP [Concomitant]
     Indication: PARKINSON'S DISEASE
     Route: 048
  4. PAXIL [Suspect]
     Indication: DEPRESSIVE SYMPTOM
     Dosage: 20MG PER DAY
     Route: 048
  5. ANTICHOLINERGIC [Concomitant]
     Indication: PRODUCT USED FOR UNKNOWN INDICATION
     Route: 065

REACTIONS (3)
  - HALLUCINATION, VISUAL [None]
  - THINKING ABNORMAL [None]
  - DELIRIUM [None]
